FAERS Safety Report 4986854-9 (Version None)
Quarter: 2006Q2

REPORT INFORMATION
  Report Type: 
  Country: None (occurrence: None)
  Receive Date: 20060428
  Receipt Date: 20060420
  Transmission Date: 20061013
  Serious: Yes (Hospitalization, Other)
  Sender: FDA-Public Use
  Company Number: CA-ABBOTT-06P-028-0331304-00

PATIENT
  Age: 71 Year
  Sex: Male

DRUGS (2)
  1. LIPIDIL SUPRA TABLETS [Suspect]
     Indication: DRUG USE FOR UNKNOWN INDICATION
  2. ANTIHYPERTENSIVES [Concomitant]
     Indication: DRUG USE FOR UNKNOWN INDICATION

REACTIONS (1)
  - BLOOD LACTIC ACID INCREASED [None]
